FAERS Safety Report 5383960-4 (Version None)
Quarter: 2007Q3

REPORT INFORMATION
  Report Type: 
  Country: None (occurrence: None)
  Receive Date: 20070711
  Receipt Date: 20070702
  Transmission Date: 20080115
  Serious: Yes (Death, Hospitalization, Disabling)
  Sender: FDA-Public Use
  Company Number: FR-ROCHE-505243

PATIENT
  Age: 67 Year
  Sex: Male

DRUGS (3)
  1. CAPECITABINE [Suspect]
     Indication: METASTATIC GASTRIC CANCER
     Dosage: GIVEN FROM DAY 2 TO 15 OF EACH 21-DAY-CYCLE.
     Route: 048
     Dates: start: 20060315
  2. EPIRUBICIN HCL [Suspect]
     Indication: METASTATIC GASTRIC CANCER
     Dosage: GIVEN IN 45CC OF NACL 0.9 % IN 15 MINUTES INFUSION ON DAY ONE OF EACH 21-DAY-CYCLE.
     Route: 042
     Dates: start: 20060311
  3. CISPLATIN [Suspect]
     Indication: METASTATIC GASTRIC CANCER
     Dosage: GIVEN IN 250CC OF NACL 0.9 % IN 1 HOUR INFUSION ON DAY ONE OF EACH 21-DAY-CYCLE.
     Route: 042
     Dates: start: 20060314

REACTIONS (1)
  - RENAL FAILURE ACUTE [None]
